FAERS Safety Report 4379920-2 (Version None)
Quarter: 2004Q2

REPORT INFORMATION
  Report Type: 
  Country: None (occurrence: None)
  Receive Date: 20040615
  Receipt Date: 20040602
  Transmission Date: 20050107
  Serious: Yes (Other)
  Sender: FDA-Public Use
  Company Number: 2004037055

PATIENT
  Age: 25 Year
  Sex: Male
  Weight: 81.6475 kg

DRUGS (1)
  1. DRAMAMINE [Suspect]
     Indication: MOTION SICKNESS
     Dosage: 2 PILLS ONCE, ORAL
     Route: 048
     Dates: start: 20040601, end: 20040601

REACTIONS (1)
  - CONVULSION [None]
